FAERS Safety Report 4696688-0 (Version None)
Quarter: 2005Q2

REPORT INFORMATION
  Report Type: 
  Country: None (occurrence: None)
  Receive Date: 20050622
  Receipt Date: 20050613
  Transmission Date: 20051028
  Serious: Yes (Hospitalization)
  Sender: FDA-Public Use
  Company Number: JP-SP-2005-01140

PATIENT
  Age: 77 Year
  Sex: Male

DRUGS (4)
  1. IMMUCYST [Suspect]
     Indication: BLADDER CANCER
     Route: 043
     Dates: start: 20041104, end: 20041224
  2. PROPIVERINE HYDROCHLORIDE [Concomitant]
     Dosage: 20 MG/DAY
     Route: 048
     Dates: start: 20041104
  3. IMIPRAMIDE HYDROCHLORIDE [Concomitant]
     Dosage: 50MG/DAY
     Route: 048
     Dates: start: 20041104
  4. POSTERISAN [Concomitant]
     Dosage: 2GR/DAY ; SUPPOSITORY

REACTIONS (1)
  - EPIDIDYMITIS TUBERCULOUS [None]
